FAERS Safety Report 20086119 (Version 1)
Quarter: 2021Q4

REPORT INFORMATION
  Report Type: Report from Study
  Country: PL (occurrence: PL)
  Receive Date: 20211118
  Receipt Date: 20211118
  Transmission Date: 20220303
  Serious: Yes (Death, Hospitalization)
  Sender: FDA-Public Use
  Company Number: PL-CELGENE-POL-20211104443

PATIENT
  Age: 68 Year
  Sex: Female
  Weight: 71 kg

DRUGS (14)
  1. LENALIDOMIDE [Suspect]
     Active Substance: LENALIDOMIDE
     Indication: Plasma cell myeloma
     Dosage: 1.7857 MILLIGRAM
     Route: 048
     Dates: start: 20210630, end: 20211027
  2. CARFILZOMIB [Suspect]
     Active Substance: CARFILZOMIB
     Indication: Plasma cell myeloma
     Dosage: 6.9286 MILLIGRAM
     Route: 041
     Dates: start: 20210630, end: 20211027
  3. DEXAMETHASONE [Suspect]
     Active Substance: DEXAMETHASONE
     Indication: Plasma cell myeloma
     Dosage: 2.8571 MILLIGRAM
     Route: 041
     Dates: start: 20210630, end: 20211027
  4. LYRICA [Concomitant]
     Active Substance: PREGABALIN
     Indication: Analgesic therapy
     Dosage: .075 GRAM
     Route: 048
     Dates: start: 20210528
  5. ESCITALOPRAM [Concomitant]
     Active Substance: ESCITALOPRAM OXALATE
     Indication: Analgesic therapy
     Dosage: .01 GRAM
     Route: 048
     Dates: start: 20210529
  6. MOLEKIN D3+K2 [Concomitant]
     Indication: Vitamin D deficiency
     Route: 048
     Dates: start: 20210707
  7. ROSUVASTATIN CALCIUM [Concomitant]
     Active Substance: ROSUVASTATIN CALCIUM
     Indication: Hypercholesterolaemia
     Dosage: .02 GRAM
     Route: 048
     Dates: start: 20150101
  8. Melodyn [Concomitant]
     Indication: Analgesic therapy
     Route: 062
     Dates: start: 20210530
  9. HASCOVIR [Concomitant]
     Indication: Product used for unknown indication
     Dosage: .2 GRAM
     Route: 048
     Dates: start: 20210701
  10. ALLOPURINOL [Concomitant]
     Active Substance: ALLOPURINOL
     Indication: Product used for unknown indication
     Dosage: .05 GRAM
     Route: 048
     Dates: start: 20210601
  11. Prazol [Concomitant]
     Indication: Product used for unknown indication
     Dosage: .02 GRAM
     Route: 048
     Dates: start: 20210527
  12. ENOXAPARIN SODIUM [Concomitant]
     Active Substance: ENOXAPARIN SODIUM
     Indication: Product used for unknown indication
     Dosage: .04 GRAM
     Route: 058
     Dates: start: 20210528
  13. ZOLEDRONIC ACID [Concomitant]
     Active Substance: ZOLEDRONIC ACID
     Indication: Product used for unknown indication
     Dosage: 4 MILLIGRAM
     Route: 041
     Dates: start: 20210701
  14. OYSTERCAL [Concomitant]
     Indication: Product used for unknown indication
     Route: 048
     Dates: start: 20210707

REACTIONS (3)
  - Lower gastrointestinal haemorrhage [Fatal]
  - COVID-19 [Fatal]
  - Acute kidney injury [Fatal]

NARRATIVE: CASE EVENT DATE: 20211101
